FAERS Safety Report 6551862-3 (Version None)
Quarter: 2010Q1

REPORT INFORMATION
  Report Type: 
  Country: None (occurrence: None)
  Receive Date: 20100126
  Receipt Date: 20100115
  Transmission Date: 20100710
  Serious: Yes (Death)
  Sender: FDA-Public Use
  Company Number: US-JNJFOC-20100106918

PATIENT
  Age: 69 Year
  Sex: Female

DRUGS (11)
  1. ACETAMINOPHEN [Suspect]
     Route: 048
  2. ACETAMINOPHEN [Suspect]
     Indication: SUICIDE ATTEMPT
     Route: 048
  3. QUETIAPINE [Suspect]
     Indication: SUICIDE ATTEMPT
     Route: 048
  4. SALICYLATES NOS [Suspect]
     Indication: SUICIDE ATTEMPT
     Route: 048
  5. DULOXETINE [Suspect]
     Indication: SUICIDE ATTEMPT
     Route: 048
  6. CLOPIDOGREL [Suspect]
     Indication: SUICIDE ATTEMPT
     Route: 048
  7. ZOLPIDEM [Suspect]
     Indication: SUICIDE ATTEMPT
     Route: 048
  8. TIOTROPIUM [Suspect]
     Indication: SUICIDE ATTEMPT
     Route: 048
  9. FLUTICASONE/SALMETEROL [Suspect]
     Indication: SUICIDE ATTEMPT
  10. BENZODIAZEPINE NOS [Suspect]
     Indication: SUICIDE ATTEMPT
     Route: 048
  11. SOLIFENACIN [Suspect]
     Indication: SUICIDE ATTEMPT
     Route: 048

REACTIONS (1)
  - DRUG TOXICITY [None]
